FAERS Safety Report 19901090 (Version 2)
Quarter: 2021Q4

REPORT INFORMATION
  Report Type: Spontaneous
  Country: US (occurrence: US)
  Receive Date: 20210930
  Receipt Date: 20211116
  Transmission Date: 20220303
  Serious: Yes (Hospitalization, Other)
  Sender: FDA-Public Use
  Company Number: US-PFIZER INC-202101259802

PATIENT
  Age: 64 Year
  Sex: Female
  Weight: 86.168 kg

DRUGS (6)
  1. INLYTA [Suspect]
     Active Substance: AXITINIB
     Indication: Renal cancer
     Dosage: 5 MG, 2X/DAY
     Route: 048
  2. INLYTA [Suspect]
     Active Substance: AXITINIB
     Dosage: 5 MG, 2X/DAY
     Route: 048
     Dates: start: 20210827
  3. VITAMIN B12 [Concomitant]
     Active Substance: CYANOCOBALAMIN
     Dosage: 1000 UG
  4. FISH OIL [Concomitant]
     Active Substance: FISH OIL
     Dosage: UNK, (100-150 MG)
  5. VITAMIN C [Concomitant]
     Active Substance: ASCORBIC ACID
     Dosage: 1000 MG
  6. SYNTHROID [Concomitant]
     Active Substance: LEVOTHYROXINE SODIUM
     Dosage: 100 UG

REACTIONS (14)
  - Hypertension [Unknown]
  - Weight decreased [Unknown]
  - Hypersensitivity [Unknown]
  - Nausea [Unknown]
  - Vomiting [Unknown]
  - Fatigue [Unknown]
  - Decreased appetite [Unknown]
  - Insomnia [Recovering/Resolving]
  - Stomatitis [Unknown]
  - Headache [Unknown]
  - Thinking abnormal [Unknown]
  - Skin disorder [Unknown]
  - Dry skin [Unknown]
  - Asthenia [Unknown]
